FAERS Safety Report 24906771 (Version 1)
Quarter: 2025Q1

REPORT INFORMATION
  Report Type: Spontaneous
  Country: US (occurrence: US)
  Receive Date: 20250130
  Receipt Date: 20250130
  Transmission Date: 20250409
  Serious: No
  Sender: SANOFI AVENTIS
  Company Number: US-SA-2025SA028743

PATIENT
  Age: 51 Year
  Sex: Male
  Weight: 88.18 kg

DRUGS (2)
  1. DUPIXENT [Suspect]
     Active Substance: DUPILUMAB
     Indication: Dermatitis atopic
     Dosage: 300 MG, QOW
     Route: 058
  2. IMATINIB MESYLATE [Concomitant]
     Active Substance: IMATINIB MESYLATE

REACTIONS (1)
  - Paraesthesia [Not Recovered/Not Resolved]
